FAERS Safety Report 8584500-9 (Version None)
Quarter: 2012Q3

REPORT INFORMATION
  Report Type: 
  Country: None (occurrence: None)
  Receive Date: 20120810
  Receipt Date: 20120807
  Transmission Date: 20120928
  Serious: Yes (Other)
  Sender: FDA-Public Use
  Company Number: US-PFIZER INC-2012171394

PATIENT
  Age: 85 Year
  Sex: Female

DRUGS (1)
  1. SUTENT [Suspect]
     Indication: RENAL CANCER
     Dosage: 50 MG, 1X/DAY, FOR 4 WEEKS
     Route: 048
     Dates: start: 20120622, end: 20120709

REACTIONS (1)
  - BLOOD PRESSURE INCREASED [None]
